FAERS Safety Report 7503387-6 (Version None)
Quarter: 2011Q2

REPORT INFORMATION
  Report Type: 
  Country: None (occurrence: None)
  Receive Date: 20110525
  Receipt Date: 20110513
  Transmission Date: 20111010
  Serious: Yes (Congenital Anomaly)
  Sender: FDA-Public Use
  Company Number: A0928648A

PATIENT
  Sex: Female

DRUGS (4)
  1. PAXIL [Suspect]
     Indication: DEPRESSION
     Route: 064
     Dates: end: 20060801
  2. PHENERGAN HCL [Concomitant]
     Indication: NAUSEA
     Route: 064
  3. ZOFRAN [Concomitant]
     Indication: NAUSEA
     Route: 064
  4. WELLBUTRIN [Concomitant]
     Indication: DEPRESSION
     Route: 064

REACTIONS (2)
  - ATRIAL SEPTAL DEFECT [None]
  - DRUG EXPOSURE DURING PREGNANCY [None]
